FAERS Safety Report 8967713 (Version 1)
Quarter: 2012Q4

REPORT INFORMATION
  Report Type: Spontaneous
  Country: US (occurrence: None)
  Receive Date: 20121213
  Receipt Date: 20121213
  Transmission Date: 20130627
  Serious: Yes (Life-Threatening, Other)
  Sender: FDA-Public Use
  Company Number: None

PATIENT
  Age: 76 Year
  Sex: Male

DRUGS (1)
  1. AZITHROMYCIN [Suspect]
     Dosage: 500 MG IV QHS
     Route: 042
     Dates: start: 20120814, end: 20120816

REACTIONS (2)
  - Sinus bradycardia [None]
  - Ventricular tachycardia [None]
